FAERS Safety Report 11355292 (Version 1)
Quarter: 2015Q3

REPORT INFORMATION
  Report Type: Spontaneous
  Country: IT (occurrence: IT)
  Receive Date: 20150807
  Receipt Date: 20150807
  Transmission Date: 20151125
  Serious: Yes (Other)
  Sender: FDA-Public Use
  Company Number: IT-AUROBINDO-AUR-APL-2015-06794

PATIENT
  Age: 55 Year
  Sex: Female

DRUGS (2)
  1. ATENOLOL. [Suspect]
     Active Substance: ATENOLOL
     Indication: HYPERTENSION
     Dosage: 50 MG, DAILY
     Route: 048
     Dates: start: 20150301, end: 20150506
  2. LACIREX [Suspect]
     Active Substance: LACIDIPINE
     Indication: HYPERTENSION
     Dosage: 2 MG, DAILY
     Route: 048
     Dates: start: 20150301, end: 20150506

REACTIONS (3)
  - Vertigo [Recovering/Resolving]
  - Hypertension [Recovering/Resolving]
  - No therapeutic response [Recovering/Resolving]

NARRATIVE: CASE EVENT DATE: 20150506
